FAERS Safety Report 24464337 (Version 1)
Quarter: 2024Q4

REPORT INFORMATION
  Report Type: Spontaneous
  Country: CN (occurrence: CN)
  Receive Date: 20241018
  Receipt Date: 20241018
  Transmission Date: 20250114
  Serious: Yes (Life-Threatening, Hospitalization)
  Sender: BAYER HEALTHCARE PHARMACEUTICALS INC.
  Company Number: CN-BAYER-2024A147660

PATIENT
  Age: 53 Year
  Sex: Male
  Weight: 60 kg

DRUGS (2)
  1. ULTRAVIST [Suspect]
     Active Substance: IOPROMIDE
     Indication: Computerised tomogram neck
     Dosage: 80 ML, ONCE
     Route: 042
     Dates: start: 20240923, end: 20240923
  2. ULTRAVIST [Suspect]
     Active Substance: IOPROMIDE
     Indication: Benign neoplasm

REACTIONS (8)
  - Anaphylactic shock [Recovering/Resolving]
  - Confusional state [Recovered/Resolved]
  - Unresponsive to stimuli [Recovered/Resolved]
  - Urinary incontinence [None]
  - Pallor [None]
  - Blood potassium decreased [None]
  - Blood pressure diastolic decreased [None]
  - Rash [None]

NARRATIVE: CASE EVENT DATE: 20240923
